FAERS Safety Report 12105459 (Version 1)
Quarter: 2016Q1

REPORT INFORMATION
  Report Type: Spontaneous
  Country: US (occurrence: None)
  Receive Date: 20160222
  Receipt Date: 20160222
  Transmission Date: 20160526
  Serious: No
  Sender: FDA-Public Use
  Company Number: None

PATIENT
  Age: 69 Year
  Sex: Female
  Weight: 54.89 kg

DRUGS (5)
  1. MULTI [Concomitant]
  2. FLAX OIL [Concomitant]
  3. X-TRA STRENGTH TUMS [Concomitant]
  4. VITAMIN B12 [Concomitant]
     Active Substance: CYANOCOBALAMIN
  5. FLUOROURACIL. [Suspect]
     Active Substance: FLUOROURACIL
     Indication: ACTINIC KERATOSIS
     Dosage: PEA SIZED DROP RUBBED INTO SKIN 2X/DAY 2XDAY ON THE SKIN
     Route: 061

REACTIONS (4)
  - Dysgeusia [None]
  - Diarrhoea [None]
  - Chills [None]
  - Abdominal pain upper [None]

NARRATIVE: CASE EVENT DATE: 20160106
